FAERS Safety Report 24738498 (Version 2)
Quarter: 2025Q2

REPORT INFORMATION
  Report Type: Report from Study
  Country: CA (occurrence: CA)
  Receive Date: 20241216
  Receipt Date: 20250606
  Transmission Date: 20250717
  Serious: Yes (Other)
  Sender: TAKEDA
  Company Number: CA-TAKEDA-2024TUS124158

PATIENT
  Sex: Female

DRUGS (5)
  1. VEDOLIZUMAB [Suspect]
     Active Substance: VEDOLIZUMAB
     Indication: Colitis ulcerative
  2. VEDOLIZUMAB [Suspect]
     Active Substance: VEDOLIZUMAB
  3. ENTOCORT [Concomitant]
     Active Substance: BUDESONIDE
  4. Salofalk [Concomitant]
  5. DIENOGEST [Concomitant]
     Active Substance: DIENOGEST

REACTIONS (4)
  - Feeling abnormal [Unknown]
  - Disturbance in attention [Unknown]
  - Palpitations [Unknown]
  - Dyspnoea [Unknown]
